FAERS Safety Report 10693002 (Version 2)
Quarter: 2015Q1

REPORT INFORMATION
  Report Type: Spontaneous
  Country: CZ (occurrence: CZ)
  Receive Date: 20150106
  Receipt Date: 20150114
  Transmission Date: 20150720
  Serious: Yes (Other)
  Sender: FDA-Public Use
  Company Number: CZ-CELGENE-CZE-2014125394

PATIENT
  Sex: Female

DRUGS (3)
  1. PREDNISONE. [Concomitant]
     Active Substance: PREDNISONE
     Indication: PLASMA CELL MYELOMA
     Route: 065
     Dates: start: 20100809, end: 20101002
  2. CYCLOPHOSPHAMIDE. [Concomitant]
     Active Substance: CYCLOPHOSPHAMIDE
     Indication: PLASMA CELL MYELOMA
     Route: 065
     Dates: start: 20100809, end: 20101002
  3. REVLIMID [Suspect]
     Active Substance: LENALIDOMIDE
     Indication: PLASMA CELL MYELOMA
     Route: 048
     Dates: start: 20100809, end: 20101002

REACTIONS (4)
  - Pulmonary embolism [Unknown]
  - Anaemia [Unknown]
  - Dyspepsia [Unknown]
  - Febrile neutropenia [Unknown]
